FAERS Safety Report 17556333 (Version 1)
Quarter: 2020Q1

REPORT INFORMATION
  Report Type: Spontaneous
  Country: US (occurrence: US)
  Receive Date: 20200318
  Receipt Date: 20200318
  Transmission Date: 20200409
  Serious: No
  Sender: FDA-Public Use
  Company Number: US-SA-2020SA065042

PATIENT
  Age: 57 Year
  Sex: Male
  Weight: 74.8 kg

DRUGS (6)
  1. DUPIXENT [Suspect]
     Active Substance: DUPILUMAB
     Indication: ASTHMA
     Dosage: 300 MG, QOW
     Route: 058
     Dates: start: 20190131
  2. DEXILANT [Concomitant]
     Active Substance: DEXLANSOPRAZOLE
  3. MUPIROCIN. [Concomitant]
     Active Substance: MUPIROCIN
  4. MONTELUKAST SODIUM. [Concomitant]
     Active Substance: MONTELUKAST SODIUM
  5. ZANTAC [Concomitant]
     Active Substance: RANITIDINE HYDROCHLORIDE
  6. EMERGEN C [Concomitant]
     Active Substance: MINERALS\VITAMINS

REACTIONS (7)
  - Fatigue [Unknown]
  - Erythema [Unknown]
  - Contusion [Unknown]
  - Malaise [Unknown]
  - Pruritus [Unknown]
  - Joint stiffness [Unknown]
  - Rash macular [Unknown]

NARRATIVE: CASE EVENT DATE: 20200220
